FAERS Safety Report 10045229 (Version 1)
Quarter: 2014Q1

REPORT INFORMATION
  Report Type: Spontaneous
  Country: IT (occurrence: IT)
  Receive Date: 20140328
  Receipt Date: 20140328
  Transmission Date: 20141002
  Serious: Yes (Hospitalization, Other)
  Sender: FDA-Public Use
  Company Number: IT-BRISTOL-MYERS SQUIBB COMPANY-20551115

PATIENT
  Age: 88 Year
  Sex: Male

DRUGS (8)
  1. COUMADIN [Suspect]
     Indication: ATRIAL FIBRILLATION
     Dosage: DOSE REDUCED ON UNK DATE
     Dates: start: 20120101
  2. CARDIOASPIRIN [Interacting]
     Indication: CARDIAC DISORDER
     Dates: start: 20120101, end: 20140222
  3. PARACETAMOL [Concomitant]
  4. CARDICOR [Concomitant]
     Indication: CARDIAC DISORDER
  5. LASITONE [Concomitant]
     Indication: HYPERTENSION
     Dosage: 1DF: 1/UNIT
  6. TOTALIP [Concomitant]
     Indication: DYSLIPIDAEMIA
  7. PANTOPAN [Concomitant]
  8. DEPONIT [Concomitant]
     Route: 062

REACTIONS (3)
  - Hypocoagulable state [Recovering/Resolving]
  - Thrombocytopenia [Recovering/Resolving]
  - Drug interaction [Unknown]
